FAERS Safety Report 12578451 (Version 1)
Quarter: 2016Q3

REPORT INFORMATION
  Report Type: Spontaneous
  Country: US (occurrence: None)
  Receive Date: 20160720
  Receipt Date: 20160720
  Transmission Date: 20161109
  Serious: Yes (Hospitalization)
  Sender: FDA-Public Use
  Company Number: None

PATIENT
  Age: 64 Year
  Sex: Male
  Weight: 76.8 kg

DRUGS (1)
  1. NAFCILLIN [Suspect]
     Active Substance: NAFCILLIN\NAFCILLIN SODIUM
     Indication: BACTERAEMIA
     Route: 042
     Dates: start: 20160713, end: 20160716

REACTIONS (3)
  - Acute kidney injury [None]
  - Ankle fracture [None]
  - Bacteraemia [None]

NARRATIVE: CASE EVENT DATE: 20160713
